FAERS Safety Report 11926406 (Version 1)
Quarter: 2016Q1

REPORT INFORMATION
  Report Type: Other
  Country: GB (occurrence: GB)
  Receive Date: 20160119
  Receipt Date: 20160119
  Transmission Date: 20160526
  Serious: Yes (Other)
  Sender: FDA-Public Use
  Company Number: GB-CIPLA LTD.-2016GB00206

PATIENT

DRUGS (4)
  1. VENLAFAXINE [Interacting]
     Active Substance: VENLAFAXINE HYDROCHLORIDE
     Indication: DEPRESSION
     Dosage: LONG TERM
     Route: 065
  2. LAMOTRIGINE. [Suspect]
     Active Substance: LAMOTRIGINE
     Indication: TEMPORAL LOBE EPILEPSY
     Route: 065
  3. KEPPRA [Interacting]
     Active Substance: LEVETIRACETAM
     Indication: TEMPORAL LOBE EPILEPSY
     Route: 065
  4. NYTOL [Interacting]
     Active Substance: DIPHENHYDRAMINE HYDROCHLORIDE
     Dosage: 1 DF, QD AT NIGHT
     Route: 065

REACTIONS (2)
  - Drug interaction [Unknown]
  - Epilepsy [Unknown]
